FAERS Safety Report 12090228 (Version 1)
Quarter: 2016Q1

REPORT INFORMATION
  Report Type: Other
  Country: KR (occurrence: KR)
  Receive Date: 20160218
  Receipt Date: 20160218
  Transmission Date: 20160526
  Serious: Yes (Hospitalization)
  Sender: FDA-Public Use
  Company Number: KR-WARNER CHILCOTT, LLC-1048065

PATIENT
  Age: 57 Year
  Sex: Female

DRUGS (1)
  1. ASACOL [Suspect]
     Active Substance: MESALAMINE
     Indication: COLITIS ULCERATIVE

REACTIONS (4)
  - Pancytopenia [Recovered/Resolved]
  - Leukopenia [None]
  - Petechiae [None]
  - Alopecia [None]
